FAERS Safety Report 6053445-0 (Version None)
Quarter: 2009Q1

REPORT INFORMATION
  Report Type: 
  Country: None (occurrence: None)
  Receive Date: 20090127
  Receipt Date: 20080407
  Transmission Date: 20090719
  Serious: Yes (Other)
  Sender: FDA-Public Use
  Company Number: US-TEVA-169727USA

PATIENT
  Sex: Female
  Weight: 56.75 kg

DRUGS (1)
  1. COPAXONE [Suspect]
     Indication: MULTIPLE SCLEROSIS
     Route: 058
     Dates: start: 20060101, end: 20080403

REACTIONS (12)
  - ANXIETY [None]
  - CHEST DISCOMFORT [None]
  - DYSPNOEA [None]
  - FEAR [None]
  - FLUSHING [None]
  - IMMEDIATE POST-INJECTION REACTION [None]
  - INJECTION SITE HAEMORRHAGE [None]
  - MUSCLE TIGHTNESS [None]
  - MUSCULAR WEAKNESS [None]
  - NERVOUSNESS [None]
  - PALPITATIONS [None]
  - THROAT TIGHTNESS [None]
